FAERS Safety Report 9333580 (Version 1)
Quarter: 2013Q2

REPORT INFORMATION
  Report Type: Report from Study
  Country: DE (occurrence: DE)
  Receive Date: 20130606
  Receipt Date: 20130606
  Transmission Date: 20140414
  Serious: Yes (Other)
  Sender: FDA-Public Use
  Company Number: DE-ASTRAZENECA-2013SE37740

PATIENT
  Sex: 0

DRUGS (3)
  1. PROPOFOL [Suspect]
     Indication: SEDATION
     Route: 042
  2. KETAMINE [Suspect]
     Indication: SEDATION
     Route: 042
  3. MIDAZOLAM [Concomitant]
     Indication: PREMEDICATION
     Route: 042

REACTIONS (1)
  - Bronchial obstruction [Unknown]
